FAERS Safety Report 22090446 (Version 2)
Quarter: 2023Q2

REPORT INFORMATION
  Report Type: Spontaneous
  Country: US (occurrence: US)
  Receive Date: 20230313
  Receipt Date: 20230519
  Transmission Date: 20230722
  Serious: No
  Sender: FDA-Public Use
  Company Number: US-BRISTOL-MYERS SQUIBB COMPANY-2023-036094

PATIENT
  Age: 34 Year
  Sex: Male

DRUGS (2)
  1. SOTYKTU [Suspect]
     Active Substance: DEUCRAVACITINIB
     Indication: Psoriasis
     Dosage: DAILY
     Route: 048
     Dates: start: 202301
  2. SOTYKTU [Suspect]
     Active Substance: DEUCRAVACITINIB
     Route: 048
     Dates: start: 20230127

REACTIONS (1)
  - Drug ineffective [Unknown]
